FAERS Safety Report 19648372 (Version 1)
Quarter: 2021Q3

REPORT INFORMATION
  Report Type: Spontaneous
  Country: US (occurrence: US)
  Receive Date: 20210803
  Receipt Date: 20210803
  Transmission Date: 20211014
  Serious: No
  Sender: FDA-Public Use
  Company Number: US-TEVA-2021-US-1937346

PATIENT
  Age: 55 Year
  Sex: Female

DRUGS (6)
  1. VYVANSE [Concomitant]
     Active Substance: LISDEXAMFETAMINE DIMESYLATE
     Route: 065
  2. HYDROXYZINE HCL [Concomitant]
     Active Substance: HYDROXYZINE HYDROCHLORIDE
     Route: 065
  3. NUEDEXTA [Concomitant]
     Active Substance: DEXTROMETHORPHAN HYDROBROMIDE\QUINIDINE SULFATE
     Dosage: 10?20 MG
     Route: 065
  4. TRINTELLIX [Concomitant]
     Active Substance: VORTIOXETINE HYDROBROMIDE
     Route: 065
  5. AUSTEDO [Suspect]
     Active Substance: DEUTETRABENAZINE
     Indication: TARDIVE DYSKINESIA
     Dosage: 6 MILLIGRAM DAILY;
     Route: 048
     Dates: start: 202106
  6. LAMOTRIGINE. [Concomitant]
     Active Substance: LAMOTRIGINE
     Route: 065

REACTIONS (2)
  - Constipation [Unknown]
  - Dizziness [Unknown]

NARRATIVE: CASE EVENT DATE: 2021
